FAERS Safety Report 17454026 (Version 1)
Quarter: 2020Q1

REPORT INFORMATION
  Report Type: Spontaneous
  Country: GB (occurrence: GB)
  Receive Date: 20200224
  Receipt Date: 20200224
  Transmission Date: 20200409
  Serious: Yes (Other)
  Sender: FDA-Public Use
  Company Number: GB-TEVA-2020-GB-1190641

PATIENT
  Age: 51 Year
  Sex: Female
  Weight: 64.86 kg

DRUGS (4)
  1. EVOREL CONTI [Concomitant]
     Active Substance: ESTRADIOL\NORETHINDRONE ACETATE
     Indication: HORMONE REPLACEMENT THERAPY
  2. PROPRANOLOL HYDROCHLORIDE. [Suspect]
     Active Substance: PROPRANOLOL HYDROCHLORIDE
     Indication: ANXIETY
     Dosage: 10 MG
     Route: 048
     Dates: start: 20200205, end: 20200205
  3. IBUPROFEN. [Concomitant]
     Active Substance: IBUPROFEN
     Dosage: (BUT NOT AT TIME OF TAKING PROPRANOLOL)
  4. PARACETAMOL [Concomitant]
     Active Substance: ACETAMINOPHEN

REACTIONS (5)
  - Asthenia [Recovered/Resolved]
  - Suicidal ideation [Recovered/Resolved]
  - Social avoidant behaviour [Recovered/Resolved]
  - Self-injurious ideation [Recovered/Resolved]
  - Violence-related symptom [Recovered/Resolved]

NARRATIVE: CASE EVENT DATE: 20200205
